FAERS Safety Report 19273739 (Version 1)
Quarter: 2021Q2

REPORT INFORMATION
  Report Type: Spontaneous
  Country: US (occurrence: US)
  Receive Date: 20210518
  Receipt Date: 20210518
  Transmission Date: 20210717
  Serious: Yes (Life-Threatening, Hospitalization, Disabling)
  Sender: FDA-Public Use
  Company Number: None

PATIENT
  Age: 92 Year
  Sex: Male
  Weight: 91 kg

DRUGS (1)
  1. APIXABAN [Suspect]
     Active Substance: APIXABAN
     Indication: ATRIAL FIBRILLATION
     Route: 048
     Dates: end: 20200501

REACTIONS (12)
  - Mental status changes [None]
  - Breath sounds abnormal [None]
  - Pneumonia aspiration [None]
  - Respiratory distress [None]
  - Vomiting [None]
  - Dyspnoea [None]
  - Oedema [None]
  - Heart rate irregular [None]
  - Cerebral mass effect [None]
  - Brain compression [None]
  - Hyporesponsive to stimuli [None]
  - Cerebellar haematoma [None]

NARRATIVE: CASE EVENT DATE: 20200501
